FAERS Safety Report 24944273 (Version 2)
Quarter: 2025Q1

REPORT INFORMATION
  Report Type: Report from Study
  Country: US (occurrence: US)
  Receive Date: 20250208
  Receipt Date: 20250214
  Transmission Date: 20250409
  Serious: Yes (Hospitalization)
  Sender: ABBVIE
  Company Number: US-ABBVIE-6118902

PATIENT
  Age: 48 Year
  Sex: Male
  Weight: 86.182 kg

DRUGS (3)
  1. RINVOQ [Suspect]
     Active Substance: UPADACITINIB
     Indication: Crohn^s disease
     Dosage: FORM STRENGTH: 45 MG   LAST ADMIN DATE 2024
     Route: 048
  2. RINVOQ [Suspect]
     Active Substance: UPADACITINIB
     Indication: Crohn^s disease
     Route: 048
     Dates: start: 20241009, end: 202411
  3. OXYCODONE [Concomitant]
     Active Substance: OXYCODONE
     Indication: Proctalgia

REACTIONS (6)
  - Influenza [Recovering/Resolving]
  - Norovirus infection [Recovering/Resolving]
  - Abdominal pain upper [Recovered/Resolved]
  - Sinus congestion [Not Recovered/Not Resolved]
  - Chest pain [Recovered/Resolved]
  - Exposure to communicable disease [Unknown]

NARRATIVE: CASE EVENT DATE: 20250101
